FAERS Safety Report 24794022 (Version 1)
Quarter: 2024Q4

REPORT INFORMATION
  Report Type: Report from Study
  Country: IN (occurrence: IN)
  Receive Date: 20241231
  Receipt Date: 20241231
  Transmission Date: 20250114
  Serious: Yes (Death, Hospitalization)
  Sender: ROCHE
  Company Number: IN-ROCHE-10000145860

PATIENT
  Age: 54 Year
  Sex: Female

DRUGS (1)
  1. TECENTRIQ [Suspect]
     Active Substance: ATEZOLIZUMAB
     Indication: Lung neoplasm malignant
     Route: 042
     Dates: start: 20241106

REACTIONS (15)
  - Urinary tract infection [Unknown]
  - Myocardial hypoxia [Fatal]
  - Brain hypoxia [Fatal]
  - Heart rate increased [Unknown]
  - Thrombosis [Unknown]
  - Ill-defined disorder [Unknown]
  - Anxiety [Unknown]
  - Feeling abnormal [Unknown]
  - Pain in extremity [Unknown]
  - Cardiac death [Fatal]
  - Brain death [Fatal]
  - Asthenia [Unknown]
  - Hyperhidrosis [Unknown]
  - Infection [Unknown]
  - Disease progression [Unknown]

NARRATIVE: CASE EVENT DATE: 20241201
